FAERS Safety Report 13678870 (Version 7)
Quarter: 2017Q4

REPORT INFORMATION
  Report Type: Spontaneous
  Country: US (occurrence: US)
  Receive Date: 20170622
  Receipt Date: 20171204
  Transmission Date: 20180320
  Serious: Yes (Other)
  Sender: FDA-Public Use
  Company Number: US-PFIZER INC-2017268258

PATIENT
  Age: 86 Year
  Sex: Female
  Weight: 86.18 kg

DRUGS (1)
  1. EPINEPHRINE. [Suspect]
     Active Substance: EPINEPHRINE
     Dosage: 1 GTT, UNK (1 DROP IN MY EYE)

REACTIONS (2)
  - Drug hypersensitivity [Unknown]
  - Laryngospasm [Unknown]
